FAERS Safety Report 5591096-2 (Version None)
Quarter: 2008Q1

REPORT INFORMATION
  Report Type: 
  Country: None (occurrence: None)
  Receive Date: 20080110
  Receipt Date: 20071221
  Transmission Date: 20080703
  Serious: Yes (Other)
  Sender: FDA-Public Use
  Company Number: S08-CAN-00059-01

PATIENT
  Age: 31 Year
  Sex: Female

DRUGS (5)
  1. CELEXA [Suspect]
     Dosage: 12.5 MG QD PO
     Route: 048
  2. CYCLOBENZAPRINE HCL [Concomitant]
  3. DIANE-35                  (CYPROTERONE ACETATE/ETHINYL ESTRADIOL) [Concomitant]
  4. OXAZEPAM [Concomitant]
  5. RISPERDAL [Concomitant]

REACTIONS (22)
  - ABNORMAL DREAMS [None]
  - AFFECT LABILITY [None]
  - AGGRESSION [None]
  - AGITATION [None]
  - AKATHISIA [None]
  - CONDITION AGGRAVATED [None]
  - DEPRESSION [None]
  - DIARRHOEA [None]
  - FAECES DISCOLOURED [None]
  - HALLUCINATION [None]
  - INSOMNIA [None]
  - MANIA [None]
  - MYOCLONUS [None]
  - NAUSEA [None]
  - PANIC REACTION [None]
  - PARAESTHESIA [None]
  - PARANOIA [None]
  - SENSATION OF HEAVINESS [None]
  - SOMNOLENCE [None]
  - STUPOR [None]
  - SUICIDAL IDEATION [None]
  - YAWNING [None]
